FAERS Safety Report 7960863-X (Version None)
Quarter: 2011Q4

REPORT INFORMATION
  Report Type: 
  Country: None (occurrence: None)
  Receive Date: 20111207
  Receipt Date: 20111202
  Transmission Date: 20120403
  Serious: Yes (Death, Other)
  Sender: FDA-Public Use
  Company Number: US-AMGEN-USASP2011000768

PATIENT
  Age: 54 Year
  Sex: Male
  Weight: 167.35 kg

DRUGS (5)
  1. NPLATE [Suspect]
     Indication: THROMBOCYTOPENIA
     Dosage: 3 MUG/KG, QWK
     Dates: start: 20101007, end: 20101222
  2. LEVOTHROID [Concomitant]
     Indication: PRODUCT USED FOR UNKNOWN INDICATION
  3. PRAVASTATIN                        /00880402/ [Concomitant]
     Indication: PRODUCT USED FOR UNKNOWN INDICATION
  4. ACYCLOVIR [Concomitant]
     Indication: PRODUCT USED FOR UNKNOWN INDICATION
     Dosage: UNK
     Dates: start: 20101022, end: 20101103
  5. NEUPOGEN [Concomitant]
     Indication: PRODUCT USED FOR UNKNOWN INDICATION

REACTIONS (9)
  - PLATELET COUNT DECREASED [None]
  - DYSPNOEA [None]
  - DISEASE PROGRESSION [None]
  - REFUSAL OF TREATMENT BY PATIENT [None]
  - ANAEMIA [None]
  - INFECTION [None]
  - DISSEMINATED INTRAVASCULAR COAGULATION [None]
  - THERAPEUTIC RESPONSE DECREASED [None]
  - MYELODYSPLASTIC SYNDROME [None]
